FAERS Safety Report 9185140 (Version 1)
Quarter: 2013Q1

REPORT INFORMATION
  Report Type: Spontaneous
  Country: US (occurrence: US)
  Receive Date: 20130325
  Receipt Date: 20130325
  Transmission Date: 20140127
  Serious: Yes (Other)
  Sender: FDA-Public Use
  Company Number: US-ASTRAZENECA-2012SE81485

PATIENT
  Age: 38 Year
  Sex: Male

DRUGS (2)
  1. NEXIUM [Suspect]
     Route: 048
  2. METHOTREXATE [Suspect]
     Route: 065

REACTIONS (3)
  - Neoplasm malignant [Unknown]
  - Hypertension [Unknown]
  - Abdominal discomfort [Unknown]
